FAERS Safety Report 21892331 (Version 1)
Quarter: 2023Q1

REPORT INFORMATION
  Report Type: Spontaneous
  Country: US (occurrence: US)
  Receive Date: 20230120
  Receipt Date: 20230120
  Transmission Date: 20230417
  Serious: No
  Sender: FDA-Public Use
  Company Number: US-JAZZ-2022-US-037248

PATIENT
  Age: 24 Year
  Sex: Male

DRUGS (1)
  1. XYREM [Suspect]
     Active Substance: SODIUM OXYBATE
     Indication: Narcolepsy

REACTIONS (6)
  - Disorientation [Unknown]
  - Dehydration [Unknown]
  - Feeling abnormal [Unknown]
  - Nausea [Unknown]
  - Product dose omission issue [Unknown]
  - Wrong dose [Unknown]
